FAERS Safety Report 5636606-1 (Version None)
Quarter: 2008Q1

REPORT INFORMATION
  Report Type: 
  Country: None (occurrence: None)
  Receive Date: 20080219
  Receipt Date: 20080219
  Transmission Date: 20080703
  Serious: Yes (Other)
  Sender: FDA-Public Use
  Company Number: None

PATIENT
  Age: 56 Year
  Sex: Male
  Weight: 108.8633 kg

DRUGS (1)
  1. BYETTA [Suspect]

REACTIONS (2)
  - BILE DUCT CANCER [None]
  - HEPATIC NEOPLASM MALIGNANT [None]
